FAERS Safety Report 16761137 (Version 1)
Quarter: 2019Q3

REPORT INFORMATION
  Report Type: Spontaneous
  Country: US (occurrence: US)
  Receive Date: 20190830
  Receipt Date: 20190830
  Transmission Date: 20191005
  Serious: No
  Sender: FDA-Public Use
  Company Number: US-ANIPHARMA-2019-US-001058

PATIENT
  Age: 64 Year
  Sex: Female
  Weight: 88.45 kg

DRUGS (6)
  1. OXYBUTYNIN. [Concomitant]
     Active Substance: OXYBUTYNIN CHLORIDE
     Dosage: UNK
     Route: 048
  2. METOPROLOL SUCCINATE? [Suspect]
     Active Substance: METOPROLOL SUCCINATE
     Dosage: 100 MG DAILY
     Route: 048
     Dates: start: 2012
  3. LATANAPROST [Concomitant]
     Active Substance: LATANOPROST
     Dosage: UNK
  4. TIMOLOL. [Concomitant]
     Active Substance: TIMOLOL
     Dosage: UNK
  5. SYMBICORT [Suspect]
     Active Substance: BUDESONIDE\FORMOTEROL FUMARATE DIHYDRATE
     Dosage: 2 RESPIRATORY INHALATIONS TWICE A DAY
     Route: 055
     Dates: start: 201805
  6. ARIMIDEX [Suspect]
     Active Substance: ANASTROZOLE
     Indication: BREAST CANCER
     Dosage: ONE TABLET DAILY
     Route: 048
     Dates: start: 201407

REACTIONS (4)
  - Asthma [Unknown]
  - Bronchitis [Unknown]
  - Cough [Recovered/Resolved]
  - Laryngitis [Unknown]

NARRATIVE: CASE EVENT DATE: 201805
